FAERS Safety Report 19704569 (Version 1)
Quarter: 2021Q3

REPORT INFORMATION
  Report Type: Report from Study
  Country: PA (occurrence: PA)
  Receive Date: 20210816
  Receipt Date: 20210816
  Transmission Date: 20211014
  Serious: Yes (Other)
  Sender: FDA-Public Use
  Company Number: NVSC2021PA183451

PATIENT
  Age: 91 Year
  Sex: Female

DRUGS (2)
  1. EXFORGE HCT [Suspect]
     Active Substance: AMLODIPINE BESYLATE\HYDROCHLOROTHIAZIDE\VALSARTAN
     Dosage: UNK
     Route: 065
     Dates: end: 202106
  2. EXFORGE HCT [Suspect]
     Active Substance: AMLODIPINE BESYLATE\HYDROCHLOROTHIAZIDE\VALSARTAN
     Indication: PRODUCT USED FOR UNKNOWN INDICATION
     Dosage: UNK
     Route: 065
     Dates: start: 202105

REACTIONS (11)
  - Dehydration [Unknown]
  - Thyroid disorder [Unknown]
  - Drug intolerance [Unknown]
  - Pollakiuria [Unknown]
  - Feeling abnormal [Unknown]
  - Malaise [Unknown]
  - Renal failure [Unknown]
  - Blood pressure decreased [Unknown]
  - Heart rate abnormal [Unknown]
  - Syncope [Unknown]
  - Off label use [Unknown]
